FAERS Safety Report 14358704 (Version 2)
Quarter: 2018Q3

REPORT INFORMATION
  Report Type: Spontaneous
  Country: US (occurrence: US)
  Receive Date: 20180105
  Receipt Date: 20180702
  Transmission Date: 20181010
  Serious: No
  Sender: FDA-Public Use
  Company Number: US-SA-2017SA248039

PATIENT
  Age: 49 Year
  Sex: Female
  Weight: 77.1 kg

DRUGS (1)
  1. DUPIXENT [Suspect]
     Active Substance: DUPILUMAB
     Indication: DERMATITIS ATOPIC
     Dosage: 300 MG,QOW
     Route: 058
     Dates: start: 20171106

REACTIONS (6)
  - Nasopharyngitis [Unknown]
  - Dermatitis [Unknown]
  - Influenza [Unknown]
  - Vomiting [Unknown]
  - Feeling cold [Unknown]
  - Diarrhoea [Unknown]

NARRATIVE: CASE EVENT DATE: 20171127
